FAERS Safety Report 11032264 (Version 1)
Quarter: 2015Q2

REPORT INFORMATION
  Report Type: Spontaneous
  Country: US (occurrence: US)
  Receive Date: 20150415
  Receipt Date: 20150415
  Transmission Date: 20150821
  Serious: Yes (Other)
  Sender: FDA-Public Use
  Company Number: US-GLAXOSMITHKLINE-US2015GSK047231

PATIENT
  Age: 50 Year
  Sex: Male

DRUGS (1)
  1. MELPHALAN [Suspect]
     Active Substance: MELPHALAN
     Indication: MALIGNANT MELANOMA STAGE III
     Dosage: UNK, CYC

REACTIONS (4)
  - Anaplastic large cell lymphoma T- and null-cell types [Recovered/Resolved]
  - Lymphoedema [Recovered/Resolved]
  - Skin lesion [Recovered/Resolved]
  - Lymphocytic infiltration [Recovered/Resolved]

NARRATIVE: CASE EVENT DATE: 1999
